FAERS Safety Report 9159615 (Version 1)
Quarter: 2013Q1

REPORT INFORMATION
  Report Type: Spontaneous
  Country: US (occurrence: None)
  Receive Date: 20130312
  Receipt Date: 20130312
  Transmission Date: 20140127
  Serious: Yes (Life-Threatening)
  Sender: FDA-Public Use
  Company Number: None

PATIENT
  Age: 70 Year
  Sex: Female
  Weight: 48 kg

DRUGS (2)
  1. ALTEPLASE [Suspect]
     Indication: ISCHAEMIC STROKE
     Dosage: 12MG ONCE IV
     Route: 042
     Dates: start: 20130201, end: 20130201
  2. LISINOPRIL [Concomitant]

REACTIONS (4)
  - Rash [None]
  - Restlessness [None]
  - Drooling [None]
  - Angioedema [None]
